FAERS Safety Report 13891889 (Version 2)
Quarter: 2017Q4

REPORT INFORMATION
  Report Type: Spontaneous
  Country: US (occurrence: US)
  Receive Date: 20170822
  Receipt Date: 20171208
  Transmission Date: 20180320
  Serious: No
  Sender: FDA-Public Use
  Company Number: US-PFIZER INC-2017363855

PATIENT
  Age: 73 Year
  Sex: Male
  Weight: 99.34 kg

DRUGS (2)
  1. GABAPENTIN. [Suspect]
     Active Substance: GABAPENTIN
     Indication: OEDEMA PERIPHERAL
     Dosage: 300 MG, UNK
     Dates: start: 20150207
  2. GABAPENTIN. [Suspect]
     Active Substance: GABAPENTIN
     Dosage: 600 MG, 4X/DAY
     Dates: start: 20151020, end: 20151030

REACTIONS (3)
  - Abnormal dreams [Recovered/Resolved]
  - Product use in unapproved indication [Unknown]
  - Dysstasia [Recovered/Resolved]

NARRATIVE: CASE EVENT DATE: 20150207
